FAERS Safety Report 5277350-2 (Version None)
Quarter: 2007Q1

REPORT INFORMATION
  Report Type: 
  Country: None (occurrence: None)
  Receive Date: 20061213
  Receipt Date: 20041220
  Transmission Date: 20070707
  Serious: Yes (Hospitalization, Disabling)
  Sender: FDA-Public Use
  Company Number: 2004AC01067

PATIENT
  Age: 31 Year
  Sex: Male

DRUGS (3)
  1. QUETIAPINE FUMARATE [Suspect]
     Indication: PSYCHOTIC DISORDER
  2. OLANZAPINE [Suspect]
     Indication: PSYCHOTIC DISORDER
  3. METHYLENEDIXOYMETHAMPHETAMINE [Suspect]

REACTIONS (2)
  - INTENTIONAL DRUG MISUSE [None]
  - NEUROLEPTIC MALIGNANT SYNDROME [None]
